FAERS Safety Report 18418123 (Version 2)
Quarter: 2021Q1

REPORT INFORMATION
  Report Type: Spontaneous
  Country: DE (occurrence: DE)
  Receive Date: 20201023
  Receipt Date: 20210319
  Transmission Date: 20210419
  Serious: Yes (Other)
  Sender: FDA-Public Use
  Company Number: DE-UCBSA-2020041317

PATIENT
  Age: 49 Year
  Sex: Male
  Weight: 97 kg

DRUGS (5)
  1. TORASEMIDE [Concomitant]
     Active Substance: TORSEMIDE
     Indication: PRODUCT USED FOR UNKNOWN INDICATION
  2. DELIX [PHENYLPROPANOLAMINE HYDROCHLORIDE;PHOLCODINE;PROMETHAZINE HYDRO [Concomitant]
     Indication: PRODUCT USED FOR UNKNOWN INDICATION
  3. MELPERONE [Concomitant]
     Active Substance: MELPERONE
     Indication: PRODUCT USED FOR UNKNOWN INDICATION
     Dosage: 25 MILLIGRAM, 2X/DAY (BID)
  4. MELPERONE [Concomitant]
     Active Substance: MELPERONE
     Dosage: 50 MILLIGRAM, 3X/DAY (TID)
  5. VIMPAT [Suspect]
     Active Substance: LACOSAMIDE
     Indication: PRODUCT USED FOR UNKNOWN INDICATION
     Dosage: 300 MILLIGRAM, 2X/DAY (BID)
     Route: 048
     Dates: start: 20200407

REACTIONS (1)
  - Psoriasis [Unknown]

NARRATIVE: CASE EVENT DATE: 20200929
